FAERS Safety Report 13063789 (Version 1)
Quarter: 2016Q4

REPORT INFORMATION
  Report Type: Spontaneous
  Country: US (occurrence: US)
  Receive Date: 20161227
  Receipt Date: 20161227
  Transmission Date: 20170207
  Serious: No
  Sender: FDA-Public Use
  Company Number: US-PFIZER INC-2016584978

PATIENT
  Age: 57 Year
  Sex: Male

DRUGS (5)
  1. FENTANYL CITRATE. [Suspect]
     Active Substance: FENTANYL CITRATE
     Dosage: UNK
  2. GABAPENTIN. [Suspect]
     Active Substance: GABAPENTIN
     Dosage: UNK
  3. LYRICA [Suspect]
     Active Substance: PREGABALIN
     Dosage: UNK
  4. ATORVASTATIN CALCIUM. [Suspect]
     Active Substance: ATORVASTATIN CALCIUM
     Dosage: UNK
  5. METHADONE [Suspect]
     Active Substance: METHADONE HYDROCHLORIDE
     Dosage: UNK

REACTIONS (1)
  - Drug hypersensitivity [Not Recovered/Not Resolved]
